FAERS Safety Report 13931414 (Version 2)
Quarter: 2018Q1

REPORT INFORMATION
  Report Type: Spontaneous
  Country: US (occurrence: US)
  Receive Date: 20170903
  Receipt Date: 20180308
  Transmission Date: 20180508
  Serious: Yes (Other)
  Sender: FDA-Public Use
  Company Number: US-MYLANLABS-2017M1054662

PATIENT
  Age: 59 Year
  Sex: Female

DRUGS (12)
  1. DROXIDOPA [Suspect]
     Active Substance: DROXIDOPA
     Dosage: 600 MG, QD (200MG, TITRATION COMPLETED)
     Dates: end: 20170805
  2. DROXIDOPA [Suspect]
     Active Substance: DROXIDOPA
     Dosage: 100 MG, QD
     Dates: start: 201708
  3. FLUDROCORTISONE ACETATE. [Suspect]
     Active Substance: FLUDROCORTISONE ACETATE
     Dosage: 1 DF, QD
  4. DROXIDOPA [Suspect]
     Active Substance: DROXIDOPA
     Dosage: 100 MG, QD
     Dates: start: 201708
  5. DROXIDOPA [Suspect]
     Active Substance: DROXIDOPA
     Dosage: 100 MG, QD(AFTERNOON)
     Dates: start: 201708
  6. MIDODRINE [Suspect]
     Active Substance: MIDODRINE
     Indication: PRODUCT USED FOR UNKNOWN INDICATION
     Dosage: UNK
  7. DROXIDOPA [Suspect]
     Active Substance: DROXIDOPA
     Dosage: 200 MG, AM
     Dates: start: 201708
  8. FLUDROCORTISONE ACETATE. [Suspect]
     Active Substance: FLUDROCORTISONE ACETATE
     Indication: PRODUCT USED FOR UNKNOWN INDICATION
     Dosage: 1 DF, Q3W
  9. DROXIDOPA [Suspect]
     Active Substance: DROXIDOPA
     Dosage: 200 MG, TID
  10. DROXIDOPA [Suspect]
     Active Substance: DROXIDOPA
     Dosage: 100 MG, PM (EVENING)
     Dates: start: 201708
  11. DROXIDOPA [Suspect]
     Active Substance: DROXIDOPA
     Indication: PRODUCT USED FOR UNKNOWN INDICATION
     Dosage: UNK
     Dates: start: 20170725
  12. DROXIDOPA [Suspect]
     Active Substance: DROXIDOPA
     Dosage: 400 MG, UNK (MORNING 200 MG, AFTERNOON 100 MG AND EVENING 100 MG)

REACTIONS (10)
  - Angina pectoris [Recovered/Resolved]
  - Vomiting [Recovered/Resolved]
  - Feeling of despair [Recovered/Resolved]
  - Heart rate irregular [Recovered/Resolved]
  - Thinking abnormal [Recovered/Resolved]
  - Anxiety [Recovered/Resolved]
  - Influenza [Unknown]
  - Nasopharyngitis [Not Recovered/Not Resolved]
  - Malaise [Recovered/Resolved]
  - Drug dose omission [Recovered/Resolved]

NARRATIVE: CASE EVENT DATE: 20170805
